FAERS Safety Report 5566660-7 (Version None)
Quarter: 2007Q4

REPORT INFORMATION
  Report Type: 
  Country: None (occurrence: None)
  Receive Date: 20071218
  Receipt Date: 20071218
  Transmission Date: 20080405
  Serious: No
  Sender: FDA-Public Use
  Company Number: None

PATIENT
  Age: 63 Year
  Sex: Female
  Weight: 54.4316 kg

DRUGS (8)
  1. LOXAPINE [Suspect]
     Dosage: 5MG TID PO
     Route: 048
  2. RISPERDAL [Concomitant]
  3. RISPERIDONE [Concomitant]
  4. BENZTROPINE [Concomitant]
  5. MACRODANTIN [Concomitant]
  6. CIPROFLOXACIN HCL [Concomitant]
  7. MOLINDONE HCL [Concomitant]
  8. LORAZEPAM [Concomitant]

REACTIONS (4)
  - EXTRAPYRAMIDAL DISORDER [None]
  - HEAD LAG [None]
  - MUSCLE RIGIDITY [None]
  - NEUROLEPTIC MALIGNANT SYNDROME [None]
